FAERS Safety Report 6341162-9 (Version None)
Quarter: 2009Q3

REPORT INFORMATION
  Report Type: 
  Country: None (occurrence: None)
  Receive Date: 20090904
  Receipt Date: 20090227
  Transmission Date: 20100115
  Serious: No
  Sender: FDA-Public Use
  Company Number: A0770931A

PATIENT
  Age: 75 Year
  Sex: Female

DRUGS (2)
  1. REQUIP [Suspect]
     Indication: PARKINSON'S DISEASE
     Dosage: 2MG PER DAY
     Route: 048
     Dates: start: 20081201
  2. INDERAL [Concomitant]

REACTIONS (1)
  - NAUSEA [None]
